FAERS Safety Report 9205015 (Version 1)
Quarter: 2013Q1

REPORT INFORMATION
  Report Type: Spontaneous
  Country: US (occurrence: None)
  Receive Date: 20120709
  Receipt Date: 20120709
  Transmission Date: 20140127
  Serious: No
  Sender: FDA-Public Use
  Company Number: 2012HGS-003378

PATIENT
  Age: 54 Year
  Sex: Female
  Weight: 82.1 kg

DRUGS (1)
  1. BENLYSTA [Suspect]
     Indication: SYSTEMIC LUPUS ERYTHEMATOSUS
     Dosage: 1IN 28D INTRAVENOUS DRIP
     Dates: start: 20120309

REACTIONS (2)
  - Pruritus [None]
  - Pruritus [None]
